FAERS Safety Report 5917395-X (Version None)
Quarter: 2008Q4

REPORT INFORMATION
  Report Type: 
  Country: None (occurrence: None)
  Receive Date: 20081014
  Receipt Date: 20081003
  Transmission Date: 20090506
  Serious: Yes (Hospitalization)
  Sender: FDA-Public Use
  Company Number: A0751455A

PATIENT
  Age: 54 Year
  Sex: Male
  Weight: 95.5 kg

DRUGS (14)
  1. AVANDIA [Suspect]
     Indication: TYPE 2 DIABETES MELLITUS
     Dosage: 8MG PER DAY
     Route: 048
  2. TRICOR [Concomitant]
  3. PREVACID [Concomitant]
  4. LIPITOR [Concomitant]
  5. LOTREL [Concomitant]
  6. AVAPRO [Concomitant]
  7. LABETALOL HCL [Concomitant]
  8. GLUCOTROL XL [Concomitant]
  9. ASPIRIN [Concomitant]
  10. NORGESIC [Concomitant]
  11. TIAZAC [Concomitant]
  12. LANTUS [Concomitant]
  13. LASIX [Concomitant]
  14. CLONIDINE [Concomitant]

REACTIONS (1)
  - MYOCARDIAL INFARCTION [None]
